FAERS Safety Report 9526383 (Version 1)
Quarter: 2013Q3

REPORT INFORMATION
  Report Type: Spontaneous
  Country: US (occurrence: US)
  Receive Date: 20130916
  Receipt Date: 20130916
  Transmission Date: 20140515
  Serious: Yes (Death)
  Sender: FDA-Public Use
  Company Number: US-ELI_LILLY_AND_COMPANY-US201309002906

PATIENT
  Age: 77 Year
  Sex: Male

DRUGS (4)
  1. INSULIN HUMAN [Suspect]
     Indication: TYPE 2 DIABETES MELLITUS
     Dosage: 10 U, EACH MORNING
     Dates: start: 201204
  2. INSULIN HUMAN [Suspect]
     Dosage: 15 U, QD
  3. INSULIN HUMAN [Suspect]
     Dosage: 8 U, EACH EVENING
  4. LANTUS [Concomitant]
     Dosage: 80 U, EACH EVENING
     Dates: end: 201302

REACTIONS (1)
  - Myocardial infarction [Fatal]
